FAERS Safety Report 9188675 (Version 1)
Quarter: 2013Q1

REPORT INFORMATION
  Report Type: Spontaneous
  Country: TW (occurrence: TW)
  Receive Date: 20130325
  Receipt Date: 20130325
  Transmission Date: 20140127
  Serious: Yes (Other)
  Sender: FDA-Public Use
  Company Number: TW-ROCHE-1205550

PATIENT
  Age: 50 Year
  Sex: Female

DRUGS (8)
  1. HERCEPTIN [Suspect]
     Indication: BREAST CANCER
     Route: 065
  2. TYKERB [Suspect]
     Indication: BREAST CANCER
     Route: 065
  3. FEMARA [Suspect]
     Indication: BREAST CANCER
     Route: 065
  4. ZOMETA [Suspect]
     Indication: BREAST CANCER
     Route: 065
  5. LIPODOX [Concomitant]
     Indication: BREAST CANCER
  6. CYCLOPHOSPHAMIDE [Concomitant]
     Indication: BREAST CANCER
  7. EPIRUBICIN [Concomitant]
     Indication: BREAST CANCER
  8. TAXOL [Concomitant]
     Indication: BREAST CANCER

REACTIONS (1)
  - Disease progression [Unknown]
